FAERS Safety Report 21354778 (Version 2)
Quarter: 2022Q4

REPORT INFORMATION
  Report Type: Spontaneous
  Country: US (occurrence: US)
  Receive Date: 20220920
  Receipt Date: 20221020
  Transmission Date: 20230113
  Serious: Yes (Hospitalization)
  Sender: FDA-Public Use
  Company Number: US-VERTEX PHARMACEUTICALS-2020-022717

PATIENT
  Sex: Female

DRUGS (17)
  1. TRIKAFTA [Suspect]
     Active Substance: ELEXACAFTOR\IVACAFTOR\TEZACAFTOR
     Indication: Cystic fibrosis
     Dosage: (2 ORANGE TABS) AM AND (1 BLUE TAB) PM
     Route: 048
     Dates: start: 20200110
  2. TRIKAFTA [Suspect]
     Active Substance: ELEXACAFTOR\IVACAFTOR\TEZACAFTOR
     Dosage: HALF DOSE. (50MG ELEXACAFTOR/25 MG TEZACAFTOR/37.5 MG IVACAFTOR, 75MG IVACAFTOR)
     Route: 048
     Dates: end: 20220601
  3. TRIKAFTA [Suspect]
     Active Substance: ELEXACAFTOR\IVACAFTOR\TEZACAFTOR
     Dosage: NOT TAKE EVENING PILLS ONLY MORNING PILLS, AM 3-4 TIMES PER WEEK
     Route: 048
     Dates: start: 20220601
  4. BIOTIN [Suspect]
     Active Substance: BIOTIN
     Indication: Product used for unknown indication
     Route: 065
  5. CREON [Concomitant]
     Active Substance: PANCRELIPASE AMYLASE\PANCRELIPASE LIPASE\PANCRELIPASE PROTEASE
  6. VENTOLIN [Concomitant]
     Active Substance: ALBUTEROL SULFATE
  7. TOBRAMYCIN [Concomitant]
     Active Substance: TOBRAMYCIN
  8. COLISTIMETHATE [Concomitant]
     Active Substance: COLISTIMETHATE SODIUM
  9. AZITHROMYCIN [Concomitant]
     Active Substance: AZITHROMYCIN
  10. LINEZOLID [Concomitant]
     Active Substance: LINEZOLID
  11. ALPRAZOLAM [Concomitant]
     Active Substance: ALPRAZOLAM
  12. VITAMIN D3 [Concomitant]
     Active Substance: CHOLECALCIFEROL
  13. LORATADINE [Concomitant]
     Active Substance: LORATADINE
  14. SODIUM CHLORIDE [Concomitant]
     Active Substance: SODIUM CHLORIDE
  15. FLUCONAZOLE [Concomitant]
     Active Substance: FLUCONAZOLE
  16. VENTOLIN HFA [Concomitant]
     Active Substance: ALBUTEROL SULFATE
  17. COLISTIMETHATE SODIUM [Concomitant]
     Active Substance: COLISTIMETHATE SODIUM

REACTIONS (16)
  - Emotional disorder [Unknown]
  - Breast tenderness [Unknown]
  - Alopecia [Unknown]
  - Abdominal distension [Unknown]
  - Abdominal discomfort [Unknown]
  - Nephrolithiasis [Unknown]
  - Constipation [Unknown]
  - Premenstrual syndrome [Unknown]
  - Gastrointestinal disorder [Recovering/Resolving]
  - Mental disorder [Recovering/Resolving]
  - Blood oestrogen increased [Recovering/Resolving]
  - Intentional product use issue [Recovered/Resolved]
  - Fluid retention [Unknown]
  - Mood swings [Recovering/Resolving]
  - Cough [Unknown]
  - Oropharyngeal pain [Unknown]

NARRATIVE: CASE EVENT DATE: 20200101
